FAERS Safety Report 11646872 (Version 2)
Quarter: 2016Q2

REPORT INFORMATION
  Report Type: Spontaneous
  Country: US (occurrence: US)
  Receive Date: 20151020
  Receipt Date: 20160504
  Transmission Date: 20160815
  Serious: No
  Sender: FDA-Public Use
  Company Number: US-ROCHE-ITM201505IM016419

PATIENT
  Sex: Female
  Weight: 81.72 kg

DRUGS (2)
  1. ESBRIET [Suspect]
     Active Substance: PIRFENIDONE
     Indication: IDIOPATHIC PULMONARY FIBROSIS
     Route: 048
     Dates: start: 20150501
  2. ESBRIET [Suspect]
     Active Substance: PIRFENIDONE
     Route: 048
     Dates: start: 20150521

REACTIONS (10)
  - Nasal congestion [Unknown]
  - Dyspepsia [Unknown]
  - Productive cough [Unknown]
  - Dizziness [Unknown]
  - Gastrooesophageal reflux disease [Unknown]
  - Vasomotor rhinitis [Unknown]
  - Drug ineffective [Unknown]
  - Infection [Unknown]
  - Headache [Unknown]
  - Nausea [Unknown]
